FAERS Safety Report 4322614-X (Version None)
Quarter: 2004Q1

REPORT INFORMATION
  Report Type: 
  Country: None (occurrence: None)
  Receive Date: 20040319
  Receipt Date: 20040311
  Transmission Date: 20041129
  Serious: Yes (Hospitalization, Other)
  Sender: FDA-Public Use
  Company Number: 200410209BVD

PATIENT
  Age: 45 Year
  Sex: Female
  Weight: 57 kg

DRUGS (3)
  1. AVELOX [Suspect]
     Indication: PNEUMONIA
     Dosage: 400 MG, TOTAL DAILY, ORAL
     Route: 048
     Dates: start: 20040119, end: 20040124
  2. KLACID [Concomitant]
  3. DICLOFENAC SODIUM [Concomitant]

REACTIONS (6)
  - BRONCHITIS [None]
  - CIRCULATORY COLLAPSE [None]
  - HEMIPARESIS [None]
  - MUSCLE TWITCHING [None]
  - MUSCULOSKELETAL PAIN [None]
  - VERTIGO [None]
